FAERS Safety Report 11222326 (Version 1)
Quarter: 2015Q2

REPORT INFORMATION
  Report Type: Spontaneous
  Country: US (occurrence: US)
  Receive Date: 20150626
  Receipt Date: 20150626
  Transmission Date: 20150821
  Serious: Yes (Other)
  Sender: FDA-Public Use
  Company Number: US-AMGEN-USASP2015061509

PATIENT
  Age: 64 Year
  Sex: Male

DRUGS (1)
  1. PROLIA [Suspect]
     Active Substance: DENOSUMAB
     Indication: OSTEOPENIA
     Dosage: UNK
     Route: 065

REACTIONS (5)
  - Malabsorption [Unknown]
  - Musculoskeletal pain [Recovered/Resolved]
  - Off label use [Unknown]
  - Gastric operation [Unknown]
  - Musculoskeletal chest pain [Recovered/Resolved]
